FAERS Safety Report 10626262 (Version 1)
Quarter: 2014Q4

REPORT INFORMATION
  Report Type: Spontaneous
  Country: IT (occurrence: IT)
  Receive Date: 20141204
  Receipt Date: 20141204
  Transmission Date: 20150529
  Serious: Yes (Other)
  Sender: FDA-Public Use
  Company Number: IT-WATSON-2014-25792

PATIENT
  Age: 32 Year
  Sex: Female
  Weight: 50 kg

DRUGS (6)
  1. DIAZEPAM. [Concomitant]
     Active Substance: DIAZEPAM
     Dosage: 2 MG, UNK
     Route: 048
  2. TRAMADOL (UNKNOWN) [Interacting]
     Active Substance: TRAMADOL
     Dosage: UNK
     Route: 030
  3. TRAMADOL (UNKNOWN) [Suspect]
     Active Substance: TRAMADOL
     Indication: ABDOMINAL PAIN
     Dosage: MINIMUM 300MG TO A MAXIMUM OF 550MG, DAILY
     Route: 048
  4. DIAZEPAM. [Concomitant]
     Active Substance: DIAZEPAM
     Indication: PRODUCT USED FOR UNKNOWN INDICATION
     Dosage: UNK, PRN
     Route: 048
  5. TRAMADOL (UNKNOWN) [Interacting]
     Active Substance: TRAMADOL
     Indication: DRUG ABUSE
     Dosage: 100 MG, DAILY
     Route: 048
  6. CITALOPRAM [Interacting]
     Active Substance: CITALOPRAM HYDROBROMIDE
     Indication: PRODUCT USED FOR UNKNOWN INDICATION
     Dosage: 20 MG, QAM
     Route: 048

REACTIONS (10)
  - Decreased appetite [Recovered/Resolved]
  - Tachycardia [Recovered/Resolved]
  - Fatigue [Recovered/Resolved]
  - Urinary retention [Recovered/Resolved]
  - Insomnia [Recovered/Resolved]
  - Drug interaction [Unknown]
  - Depression [Not Recovered/Not Resolved]
  - Constipation [Recovered/Resolved]
  - Drug abuse [Unknown]
  - Drug withdrawal syndrome [Unknown]
